FAERS Safety Report 6306220-3 (Version None)
Quarter: 2009Q3

REPORT INFORMATION
  Report Type: 
  Country: None (occurrence: None)
  Receive Date: 20090812
  Receipt Date: 20090810
  Transmission Date: 20100115
  Serious: Yes (Hospitalization, Other)
  Sender: FDA-Public Use
  Company Number: PL-ROXANE LABORATORIES, INC.-2009-RO-00805RO

PATIENT
  Age: 38 Year
  Sex: Male

DRUGS (5)
  1. TOPIRAMATE [Suspect]
  2. ETHANOL [Suspect]
  3. BICARBONATE [Concomitant]
     Indication: METABOLIC ACIDOSIS
     Dosage: 60 MEQ
  4. DIAZEPAM [Concomitant]
  5. CLONAZEPAM [Concomitant]

REACTIONS (8)
  - BRADYKINESIA [None]
  - COMA [None]
  - CONVULSION [None]
  - INTENTIONAL OVERDOSE [None]
  - METABOLIC ACIDOSIS [None]
  - SOMNOLENCE [None]
  - SPEECH DISORDER [None]
  - VERTIGO [None]
